FAERS Safety Report 8600272 (Version 2)
Quarter: 2013Q3

REPORT INFORMATION
  Report Type: Spontaneous
  Country: US (occurrence: US)
  Receive Date: 20120606
  Receipt Date: 20130724
  Transmission Date: 20140515
  Serious: Yes (Disabling)
  Sender: FDA-Public Use
  Company Number: US-ASTRAZENECA-2012SE35198

PATIENT
  Age: 50 Year
  Sex: Female

DRUGS (6)
  1. NEXIUM [Suspect]
     Route: 048
  2. PREVACID [Concomitant]
  3. PROTONIX [Concomitant]
  4. TUMS [Concomitant]
  5. MYLANTA [Concomitant]
  6. ROLAIDS [Concomitant]

REACTIONS (6)
  - Fibromyalgia [Unknown]
  - Chronic obstructive pulmonary disease [Unknown]
  - Osteoporosis [Unknown]
  - Multiple fractures [Unknown]
  - Bone disorder [Unknown]
  - Osteopenia [Unknown]
